FAERS Safety Report 20098880 (Version 2)
Quarter: 2022Q1

REPORT INFORMATION
  Report Type: Report from Study
  Country: US (occurrence: US)
  Receive Date: 20211122
  Receipt Date: 20220117
  Transmission Date: 20220424
  Serious: Yes (Hospitalization)
  Sender: FDA-Public Use
  Company Number: US-BAUSCH-BL-2021-008043

PATIENT
  Age: 83 Year
  Sex: Female

DRUGS (3)
  1. TRULANCE [Suspect]
     Active Substance: PLECANATIDE
     Indication: Irritable bowel syndrome
     Route: 048
     Dates: start: 2020, end: 2021
  2. TRULANCE [Suspect]
     Active Substance: PLECANATIDE
     Indication: Constipation
     Route: 065
     Dates: start: 20211116, end: 2021
  3. TRULANCE [Suspect]
     Active Substance: PLECANATIDE
     Route: 065
     Dates: start: 2021

REACTIONS (7)
  - Femur fracture [Unknown]
  - Fall [Unknown]
  - Gastrointestinal motility disorder [Unknown]
  - Vertigo [Unknown]
  - Dizziness [Unknown]
  - Insurance issue [Unknown]
  - Inability to afford medication [Unknown]

NARRATIVE: CASE EVENT DATE: 20211001
